FAERS Safety Report 8236766-2 (Version None)
Quarter: 2012Q1

REPORT INFORMATION
  Report Type: 
  Country: None (occurrence: None)
  Receive Date: 20120309
  Receipt Date: 20101215
  Transmission Date: 20120608
  Serious: Yes (Other)
  Sender: FDA-Public Use
  Company Number: PHHY2010US49087

PATIENT
  Age: 47 Year
  Sex: Male

DRUGS (2)
  1. ASPIRIN [Concomitant]
  2. EXTAVIA [Suspect]
     Indication: MULTIPLE SCLEROSIS
     Dosage: 0.25 MG (1 ML), QOD, SUBCUTANEOUS
     Route: 058
     Dates: start: 20100628, end: 20100922

REACTIONS (9)
  - DEPRESSED MOOD [None]
  - MULTIPLE SCLEROSIS RELAPSE [None]
  - CENTRAL NERVOUS SYSTEM LESION [None]
  - INJECTION SITE PAIN [None]
  - STRESS [None]
  - INJECTION SITE SWELLING [None]
  - INJECTION SITE REACTION [None]
  - INJECTION SITE PRURITUS [None]
  - INJECTION SITE ERYTHEMA [None]
